FAERS Safety Report 6936913-6 (Version None)
Quarter: 2010Q3

REPORT INFORMATION
  Report Type: 
  Country: None (occurrence: None)
  Receive Date: 20100823
  Receipt Date: 20100809
  Transmission Date: 20110219
  Serious: Yes (Hospitalization)
  Sender: FDA-Public Use
  Company Number: FR-ELI_LILLY_AND_COMPANY-FR201008002084

PATIENT
  Age: 60 Year
  Sex: Male

DRUGS (3)
  1. ALIMTA [Suspect]
     Indication: METASTASES TO CENTRAL NERVOUS SYSTEM
     Dosage: 500 MG/M2, UNKNOWN
     Route: 042
     Dates: start: 20100607, end: 20100628
  2. CARBOPLATIN [Concomitant]
     Indication: METASTASES TO CENTRAL NERVOUS SYSTEM
     Dosage: 10 MG/ML, UNKNOWN
     Dates: start: 20100607
  3. CARBOPLATIN [Concomitant]
     Dosage: UNK, UNKNOWN
     Dates: start: 20100628

REACTIONS (1)
  - ANAPHYLACTIC SHOCK [None]
